FAERS Safety Report 9123421 (Version 1)
Quarter: 2013Q1

REPORT INFORMATION
  Report Type: Spontaneous
  Country: US (occurrence: US)
  Receive Date: 20130227
  Receipt Date: 20130227
  Transmission Date: 20140127
  Serious: No
  Sender: FDA-Public Use
  Company Number: US-009507513-1302USA012566

PATIENT
  Sex: Male

DRUGS (1)
  1. NEXPLANON [Suspect]

REACTIONS (2)
  - Accidental exposure to product [Unknown]
  - Product quality issue [Unknown]
